FAERS Safety Report 6969964-6 (Version None)
Quarter: 2010Q3

REPORT INFORMATION
  Report Type: 
  Country: None (occurrence: None)
  Receive Date: 20100908
  Receipt Date: 20100831
  Transmission Date: 20110219
  Serious: Yes (Other)
  Sender: FDA-Public Use
  Company Number: PHHY2010US58450

PATIENT
  Age: 80 Year
  Sex: Male
  Weight: 170 kg

DRUGS (2)
  1. COMTAN [Suspect]
     Indication: PARKINSON'S DISEASE
     Dosage: 200 MG,UNK
     Route: 048
     Dates: start: 20100730, end: 20100830
  2. SINEMET [Concomitant]
     Dosage: UNK,UNK

REACTIONS (3)
  - CONFUSIONAL STATE [None]
  - HYPERSEXUALITY [None]
  - PARANOIA [None]
